FAERS Safety Report 15874309 (Version 1)
Quarter: 2019Q1

REPORT INFORMATION
  Report Type: Report from Study
  Country: US (occurrence: US)
  Receive Date: 20190126
  Receipt Date: 20190126
  Transmission Date: 20190417
  Serious: Yes (Hospitalization)
  Sender: FDA-Public Use
  Company Number: US-EXELIXIS-CABO-19018357

PATIENT
  Sex: Female

DRUGS (18)
  1. ZOFRAN [Concomitant]
     Active Substance: ONDANSETRON HYDROCHLORIDE
  2. LEVALBUTEROL. [Concomitant]
     Active Substance: LEVALBUTEROL
  3. LOPERAMIDE [Concomitant]
     Active Substance: LOPERAMIDE
  4. CRANBERRY. [Concomitant]
     Active Substance: CRANBERRY
  5. ANORO ELLIPTA [Concomitant]
     Active Substance: UMECLIDINIUM BROMIDE\VILANTEROL TRIFENATATE
  6. GABAPENTIN. [Concomitant]
     Active Substance: GABAPENTIN
  7. COMETRIQ [Suspect]
     Active Substance: CABOZANTINIB S-MALATE
     Indication: THYROID CANCER
     Dosage: 140 MG, QD
     Route: 048
     Dates: start: 20180913, end: 201812
  8. ULORIC [Concomitant]
     Active Substance: FEBUXOSTAT
  9. BUSPIRONE [Concomitant]
     Active Substance: BUSPIRONE HYDROCHLORIDE
  10. ATORVASTATIN [Concomitant]
     Active Substance: ATORVASTATIN
  11. BENZONATATE. [Concomitant]
     Active Substance: BENZONATATE
  12. LEVOTHYROXINE. [Concomitant]
     Active Substance: LEVOTHYROXINE
  13. SINGULAIR [Concomitant]
     Active Substance: MONTELUKAST SODIUM
  14. LEVEMIR [Concomitant]
     Active Substance: INSULIN DETEMIR
  15. HUMALOG [Concomitant]
     Active Substance: INSULIN LISPRO
  16. VITAMIN E [Concomitant]
     Active Substance: .ALPHA.-TOCOPHEROL
  17. OMEPRAZOLE. [Concomitant]
     Active Substance: OMEPRAZOLE
  18. ASPIRIN. [Concomitant]
     Active Substance: ASPIRIN

REACTIONS (1)
  - Wound [Unknown]

NARRATIVE: CASE EVENT DATE: 2018
